FAERS Safety Report 5307350-5 (Version None)
Quarter: 2007Q1

REPORT INFORMATION
  Report Type: 
  Country: None (occurrence: None)
  Receive Date: 20070201
  Receipt Date: 20061208
  Transmission Date: 20070707
  Serious: No
  Sender: FDA-Public Use
  Company Number: 2006PV026662

PATIENT
  Age: 55 Year
  Sex: Female
  Weight: 90.7194 kg

DRUGS (4)
  1. BYETTA [Suspect]
     Indication: DIABETES MELLITUS NON-INSULIN-DEPENDENT
     Dosage: SEE IMAGE
     Route: 058
     Dates: start: 20060201, end: 20060101
  2. BYETTA [Suspect]
     Indication: DIABETES MELLITUS NON-INSULIN-DEPENDENT
     Dosage: SEE IMAGE
     Route: 058
     Dates: start: 20050101, end: 20060201
  3. ACTOS [Concomitant]
  4. INFLUENZA VACCINE [Concomitant]

REACTIONS (5)
  - COUGH [None]
  - INFLUENZA LIKE ILLNESS [None]
  - LARYNGITIS [None]
  - NAUSEA [None]
  - WEIGHT DECREASED [None]
